FAERS Safety Report 23947087 (Version 1)
Quarter: 2024Q2

REPORT INFORMATION
  Report Type: Spontaneous
  Country: CH (occurrence: CH)
  Receive Date: 20240606
  Receipt Date: 20240606
  Transmission Date: 20240715
  Serious: Yes (Other)
  Sender: FDA-Public Use
  Company Number: CH-KYOWA KIRIN , INC.-2024KK012711

PATIENT

DRUGS (1)
  1. POTELIGEO [Suspect]
     Active Substance: MOGAMULIZUMAB-KPKC
     Indication: Cutaneous T-cell lymphoma
     Dosage: UNK (TREATED WITH MOGA FOR SEVERAL MONTHS)
     Route: 065

REACTIONS (2)
  - Renal impairment [Unknown]
  - Myocardial infarction [Unknown]
